FAERS Safety Report 4742705-9 (Version None)
Quarter: 2005Q3

REPORT INFORMATION
  Report Type: 
  Country: None (occurrence: None)
  Receive Date: 20050811
  Receipt Date: 20050722
  Transmission Date: 20060218
  Serious: Yes (Hospitalization, Disabling)
  Sender: FDA-Public Use
  Company Number: JP-MERCK-0507USA04347

PATIENT
  Age: 44 Year
  Sex: Male

DRUGS (10)
  1. PEPCID [Suspect]
     Indication: PROPHYLAXIS AGAINST GASTROINTESTINAL ULCER
     Route: 048
     Dates: start: 20050224
  2. PROGRAF [Suspect]
     Indication: IMMUNOSUPPRESSION
     Route: 048
     Dates: start: 20050223
  3. PROGRAF [Suspect]
     Route: 042
     Dates: start: 20050222, end: 20050223
  4. CELLCEPT [Concomitant]
     Route: 048
     Dates: start: 20050223
  5. MEDROL [Concomitant]
     Route: 048
     Dates: start: 20050224
  6. COZAAR [Concomitant]
     Indication: HYPERTENSION
     Route: 048
     Dates: start: 20050326
  7. METHYLPREDNISOLONE SODIUM SUCCINATE [Concomitant]
     Route: 042
     Dates: start: 20050222, end: 20050222
  8. BASILIXIMAB [Concomitant]
     Route: 042
     Dates: start: 20050223
  9. BASILIXIMAB [Concomitant]
     Route: 042
     Dates: start: 20050226
  10. PEPCID [Concomitant]
     Route: 042
     Dates: start: 20050222, end: 20050223

REACTIONS (2)
  - PAIN IN EXTREMITY [None]
  - THROMBOPHLEBITIS SUPERFICIAL [None]
